FAERS Safety Report 5675519-6 (Version None)
Quarter: 2008Q1

REPORT INFORMATION
  Report Type: 
  Country: None (occurrence: None)
  Receive Date: 20080317
  Receipt Date: 20080220
  Transmission Date: 20080703
  Serious: Yes (Hospitalization)
  Sender: FDA-Public Use
  Company Number: 2008S1002887

PATIENT
  Age: 48 Year
  Sex: Male

DRUGS (5)
  1. BACLOFEN [Suspect]
     Dosage: 300 MG;ORAL;ONCE
     Route: 048
  2. DICLOFENAC SODIUM [Suspect]
     Dosage: 1.5 GM;ORAL;ONCE
     Route: 048
  3. FELODIPINE [Suspect]
     Dosage: 300 MG;ORAL;ONCE
     Route: 048
  4. ACETAMINOPHEN [Suspect]
     Dosage: ORAL
     Route: 048
  5. COTRIMOXAZOLE (BACTRIM /00086101/) [Suspect]
     Dosage: ORAL
     Route: 048

REACTIONS (4)
  - HYPERTENSION [None]
  - HYPOTENSION [None]
  - OVERDOSE [None]
  - TACHYCARDIA [None]
